FAERS Safety Report 13995184 (Version 1)
Quarter: 2017Q3

REPORT INFORMATION
  Report Type: Spontaneous
  Country: FR (occurrence: FR)
  Receive Date: 20170921
  Receipt Date: 20170921
  Transmission Date: 20171128
  Serious: Yes (Other)
  Sender: FDA-Public Use
  Company Number: FR-MERCK KGAA-2027055

PATIENT
  Age: 65 Year
  Sex: Female

DRUGS (3)
  1. NOVOTHYROX [Suspect]
     Active Substance: LEVOTHYROXINE SODIUM
     Indication: AUTOIMMUNE THYROIDITIS
     Route: 048
     Dates: start: 2017
  2. LEVOTHYROX NF [Suspect]
     Active Substance: LEVOTHYROXINE SODIUM
     Route: 048
     Dates: start: 2017
  3. LEVOTHYROXINE NF [Suspect]
     Active Substance: LEVOTHYROXINE
     Route: 048
     Dates: start: 20170821

REACTIONS (8)
  - Depression [Not Recovered/Not Resolved]
  - Middle insomnia [None]
  - Asthenia [Not Recovered/Not Resolved]
  - Drug titration error [None]
  - Night sweats [Not Recovered/Not Resolved]
  - Chills [Not Recovered/Not Resolved]
  - Tendon pain [None]
  - Discomfort [None]

NARRATIVE: CASE EVENT DATE: 201705
